FAERS Safety Report 17283403 (Version 3)
Quarter: 2020Q2

REPORT INFORMATION
  Report Type: Spontaneous
  Country: US (occurrence: US)
  Receive Date: 20200117
  Receipt Date: 20200408
  Transmission Date: 20200713
  Serious: No
  Sender: FDA-Public Use
  Company Number: US-PFIZER INC-2020022808

PATIENT
  Age: 31 Year
  Sex: Female

DRUGS (1)
  1. XELJANZ XR [Suspect]
     Active Substance: TOFACITINIB CITRATE
     Indication: RHEUMATOID ARTHRITIS
     Dosage: 11 MG, 1X/DAY
     Route: 048
     Dates: start: 20191227

REACTIONS (11)
  - Arthralgia [Recovering/Resolving]
  - Headache [Recovered/Resolved]
  - Infection [Unknown]
  - Influenza [Unknown]
  - Paraesthesia [Unknown]
  - Joint stiffness [Recovering/Resolving]
  - Diarrhoea [Recovered/Resolved]
  - Sinusitis [Unknown]
  - Product dose omission [Unknown]
  - Fatigue [Recovered/Resolved]
  - Herpes zoster [Unknown]
